FAERS Safety Report 4559205-1 (Version None)
Quarter: 2005Q1

REPORT INFORMATION
  Report Type: 
  Country: None (occurrence: None)
  Receive Date: 20050124
  Receipt Date: 20041117
  Transmission Date: 20050727
  Serious: Yes (Other)
  Sender: FDA-Public Use
  Company Number: DE-MERCK-0411DEU00384

PATIENT
  Age: 43 Year
  Sex: Female
  Weight: 70 kg

DRUGS (5)
  1. SINGULAIR [Suspect]
     Indication: ASTHMA
     Route: 048
     Dates: start: 20021212, end: 20030116
  2. SINGULAIR [Suspect]
     Indication: SINOBRONCHITIS
     Route: 048
     Dates: start: 20021212, end: 20030116
  3. FLUTICASONE PROPIONATE AND SALMETEROL XINAFOATE [Concomitant]
     Indication: ASTHMA
     Route: 055
  4. MOMETASONE FUROATE [Concomitant]
     Indication: CHRONIC SINUSITIS
     Route: 061
  5. MOMETASONE FUROATE [Concomitant]
     Indication: NASAL POLYPS
     Route: 061

REACTIONS (1)
  - ALLERGIC GRANULOMATOUS ANGIITIS [None]
